FAERS Safety Report 8747768 (Version 3)
Quarter: 2013Q1

REPORT INFORMATION
  Report Type: Spontaneous
  Country: FR (occurrence: FR)
  Receive Date: 20120827
  Receipt Date: 20130211
  Transmission Date: 20140127
  Serious: Yes (Other)
  Sender: FDA-Public Use
  Company Number: FR-US-EMD SERONO, INC.-7155875

PATIENT
  Age: 45 Year
  Sex: Male

DRUGS (4)
  1. REBIF [Suspect]
     Indication: MULTIPLE SCLEROSIS
     Route: 058
     Dates: start: 2000, end: 20120816
  2. REBIF [Suspect]
     Route: 058
     Dates: start: 1996, end: 2000
  3. ALLOPURINOL [Suspect]
     Indication: GOUT
  4. COLCHICINE [Suspect]
     Indication: GOUT

REACTIONS (2)
  - Drug-induced liver injury [Unknown]
  - Alanine aminotransferase increased [Unknown]
